FAERS Safety Report 17896763 (Version 2)
Quarter: 2022Q3

REPORT INFORMATION
  Report Type: Spontaneous
  Country: US (occurrence: US)
  Receive Date: 20200615
  Receipt Date: 20220725
  Transmission Date: 20221026
  Serious: No
  Sender: FDA-Public Use
  Company Number: US-GILEAD-2020-0472346

PATIENT
  Age: 29 Year
  Sex: Male

DRUGS (2)
  1. COMPLERA [Suspect]
     Active Substance: EMTRICITABINE\RILPIVIRINE HYDROCHLORIDE\TENOFOVIR DISOPROXIL FUMARATE
     Indication: HIV infection
     Dosage: UNK
     Route: 048
     Dates: start: 201302, end: 2019
  2. COMPLERA [Suspect]
     Active Substance: EMTRICITABINE\RILPIVIRINE HYDROCHLORIDE\TENOFOVIR DISOPROXIL FUMARATE
     Dosage: UNK
     Route: 048
     Dates: start: 201302

REACTIONS (2)
  - Bone density decreased [Not Recovered/Not Resolved]
  - Tooth loss [Not Recovered/Not Resolved]

NARRATIVE: CASE EVENT DATE: 20150601
